FAERS Safety Report 4381935-5 (Version None)
Quarter: 2004Q2

REPORT INFORMATION
  Report Type: 
  Country: None (occurrence: None)
  Receive Date: 20040615
  Receipt Date: 20040604
  Transmission Date: 20050107
  Serious: Yes (Hospitalization)
  Sender: FDA-Public Use
  Company Number: MK200406-0062-1

PATIENT
  Age: 30 Year
  Sex: Male

DRUGS (3)
  1. TOFRANIL [Suspect]
     Indication: OVERDOSE
     Dosage: 1500MG, ONE TIME
     Dates: start: 20040517, end: 20040517
  2. CARBOLITHIUM [Concomitant]
  3. LEVOMEPROMAZINE [Concomitant]

REACTIONS (7)
  - ASTHENIA [None]
  - CONFUSIONAL STATE [None]
  - CONVULSION [None]
  - COORDINATION ABNORMAL [None]
  - DIFFICULTY IN WALKING [None]
  - OVERDOSE [None]
  - SPEECH DISORDER [None]
